FAERS Safety Report 13789481 (Version 1)
Quarter: 2017Q3

REPORT INFORMATION
  Report Type: Spontaneous
  Country: FR (occurrence: FR)
  Receive Date: 20170725
  Receipt Date: 20170725
  Transmission Date: 20171127
  Serious: Yes (Hospitalization)
  Sender: FDA-Public Use
  Company Number: FR-JNJFOC-20170718611

PATIENT
  Age: 45 Year
  Sex: Female

DRUGS (7)
  1. XARELTO [Suspect]
     Active Substance: RIVAROXABAN
     Indication: JUGULAR VEIN THROMBOSIS
     Route: 048
     Dates: end: 20170616
  2. INNOVAIR [Concomitant]
     Active Substance: BECLOMETHASONE DIPROPIONATE\FORMOTEROL
     Route: 065
  3. HYDREA [Concomitant]
     Active Substance: HYDROXYUREA
     Route: 065
  4. XARELTO [Suspect]
     Active Substance: RIVAROXABAN
     Indication: JUGULAR VEIN THROMBOSIS
     Route: 048
     Dates: start: 20170516
  5. APROVEL [Concomitant]
     Active Substance: IRBESARTAN
     Route: 065
  6. SPECIAFOLDINE [Concomitant]
     Active Substance: FOLIC ACID
     Route: 065
  7. ACTISKENAN [Concomitant]
     Active Substance: MORPHINE SULFATE
     Route: 065

REACTIONS (2)
  - Condition aggravated [Recovered/Resolved]
  - Jugular vein thrombosis [Recovered/Resolved]

NARRATIVE: CASE EVENT DATE: 20170616
